FAERS Safety Report 20959037 (Version 1)
Quarter: 2022Q2

REPORT INFORMATION
  Report Type: Other
  Country: US (occurrence: None)
  Receive Date: 20220614
  Receipt Date: 20220614
  Transmission Date: 20220721
  Serious: Yes (Other)
  Sender: FDA-Public Use
  Company Number: US-ROCHE-3115863

PATIENT
  Sex: Female

DRUGS (1)
  1. OCREVUS [Suspect]
     Active Substance: OCRELIZUMAB
     Indication: Multiple sclerosis
     Dosage: INITIAL DOSE: 300 MG
     Route: 042
     Dates: start: 2017

REACTIONS (2)
  - Urinary tract infection [Recovered/Resolved]
  - Upper respiratory tract infection [Recovered/Resolved]

NARRATIVE: CASE EVENT DATE: 20170101
